FAERS Safety Report 7052132-X (Version None)
Quarter: 2010Q4

REPORT INFORMATION
  Report Type: 
  Country: None (occurrence: None)
  Receive Date: 20101019
  Receipt Date: 20101018
  Transmission Date: 20110411
  Serious: Yes (Death, Other)
  Sender: FDA-Public Use
  Company Number: PHHY2009CA30907

PATIENT
  Sex: Male

DRUGS (2)
  1. SANDOSTATIN LAR [Suspect]
     Indication: CARCINOID TUMOUR OF THE SMALL BOWEL
     Dosage: 20 MG EVERY 4 WEEKS
     Route: 030
     Dates: start: 20090623
  2. SANDOSTATIN LAR [Suspect]
     Dosage: 20 MG, QMO
     Route: 030
     Dates: end: 20100825

REACTIONS (15)
  - ABDOMINAL DISTENSION [None]
  - ARTHRALGIA [None]
  - BLOOD PRESSURE SYSTOLIC INCREASED [None]
  - DEATH [None]
  - DECREASED APPETITE [None]
  - DIARRHOEA [None]
  - FATIGUE [None]
  - FLATULENCE [None]
  - FLUSHING [None]
  - HEADACHE [None]
  - HOT FLUSH [None]
  - HYPERSOMNIA [None]
  - HYPERTENSION [None]
  - NAUSEA [None]
  - PAIN [None]
